FAERS Safety Report 23271229 (Version 1)
Quarter: 2023Q4

REPORT INFORMATION
  Report Type: Report from Study
  Country: CA (occurrence: CA)
  Receive Date: 20231207
  Receipt Date: 20231207
  Transmission Date: 20240110
  Serious: Yes (Other)
  Sender: FDA-Public Use
  Company Number: CA-TAKEDA-2023TUS116301

PATIENT
  Sex: Male

DRUGS (4)
  1. VEDOLIZUMAB [Suspect]
     Active Substance: VEDOLIZUMAB
     Indication: Colitis ulcerative
     Dosage: 300 MILLIGRAM
     Route: 042
     Dates: start: 20171228
  2. PENTASA [Concomitant]
     Active Substance: MESALAMINE
     Dosage: UNK
  3. GOSERELIN [Concomitant]
     Active Substance: GOSERELIN
     Indication: Prostatic disorder
     Dosage: UNK UNK, Q3MONTHS
  4. EPREX [Concomitant]
     Active Substance: ERYTHROPOIETIN
     Indication: Myelodysplastic syndrome
     Dosage: UNK

REACTIONS (6)
  - Haematochezia [Unknown]
  - Cerebrovascular accident [Unknown]
  - Constipation [Unknown]
  - Haemorrhoids [Unknown]
  - Anal pruritus [Unknown]
  - Dyschezia [Unknown]
